FAERS Safety Report 10514112 (Version 1)
Quarter: 2014Q4

REPORT INFORMATION
  Report Type: Spontaneous
  Country: JP (occurrence: JP)
  Receive Date: 20141013
  Receipt Date: 20141013
  Transmission Date: 20150528
  Serious: Yes (Hospitalization)
  Sender: FDA-Public Use
  Company Number: JP-009507513-1410JPN005992

PATIENT
  Age: 63 Year

DRUGS (2)
  1. REBETOL [Suspect]
     Active Substance: RIBAVIRIN
     Route: 048
  2. PEGINTERFERON ALFA-2B [Suspect]
     Active Substance: PEGINTERFERON ALFA-2B
     Dosage: UNK

REACTIONS (3)
  - Disease recurrence [Unknown]
  - Cholangitis [Unknown]
  - Peritonitis [Unknown]
